FAERS Safety Report 18375467 (Version 1)
Quarter: 2020Q4

REPORT INFORMATION
  Report Type: Spontaneous
  Country: DE (occurrence: DE)
  Receive Date: 20201013
  Receipt Date: 20201013
  Transmission Date: 20210114
  Serious: Yes (Death, Other)
  Sender: FDA-Public Use
  Company Number: DE-ACCORD-204781

PATIENT
  Age: 81 Year
  Sex: Male

DRUGS (11)
  1. CYTARABINE/CYTARABINE HYDROCHLORIDE/CYTARABINE OCFOSFATE [Suspect]
     Active Substance: CYTARABINE
     Indication: PLASMA CELL MYELOMA
     Dosage: TRIPLE THERAPY AND AS AGE-ADJUSTED SYSTEMIC CHEMOTHERAPY
     Route: 037
  2. MELPHALAN. [Suspect]
     Active Substance: MELPHALAN
     Indication: PLASMA CELL MYELOMA
     Dosage: NINE CYCLES OF VMP CHEMOTHERAPY
     Route: 065
  3. DABRAFENIB [Suspect]
     Active Substance: DABRAFENIB
     Indication: TARGETED CANCER THERAPY
  4. METHOTREXATE. [Suspect]
     Active Substance: METHOTREXATE
     Indication: PLASMA CELL MYELOMA
     Dosage: TRIPLE THERAPY
     Route: 037
  5. BORTEZOMIBE [Suspect]
     Active Substance: BORTEZOMIB
     Indication: PLASMA CELL MYELOMA
     Dosage: NINE CYCLES OF VMP CHEMOTHERAPY
     Route: 065
  6. DEXAMETHASONE. [Suspect]
     Active Substance: DEXAMETHASONE
     Indication: PLASMA CELL MYELOMA
     Dosage: TRIPLE THERAPY
     Route: 037
  7. TRAMETINIB [Suspect]
     Active Substance: TRAMETINIB
     Indication: TARGETED CANCER THERAPY
     Route: 065
  8. PREDNISONE. [Suspect]
     Active Substance: PREDNISONE
     Indication: PLASMA CELL MYELOMA
     Dosage: NINE CYCLES OF VMP CHEMOTHERAPY
     Route: 065
  9. THIOTEPA. [Suspect]
     Active Substance: THIOTEPA
     Indication: PLASMA CELL MYELOMA
     Dosage: AGE-ADJUSTED SYSTEMIC CHEMOTHERAPY
     Route: 065
  10. TRAMETINIB [Suspect]
     Active Substance: TRAMETINIB
     Indication: PLASMA CELL MYELOMA
     Dosage: COMBINATIONAL TARGETED THERAPY
     Route: 065
  11. DABRAFENIB [Suspect]
     Active Substance: DABRAFENIB
     Indication: PLASMA CELL MYELOMA
     Dosage: COMBINATIONAL TARGETED THERAPY
     Route: 065

REACTIONS (5)
  - Drug ineffective [Unknown]
  - Off label use [Unknown]
  - Multiple-drug resistance [Unknown]
  - Neutropenia [Unknown]
  - Bacterial sepsis [Unknown]
